FAERS Safety Report 11291521 (Version 9)
Quarter: 2015Q4

REPORT INFORMATION
  Report Type: Spontaneous
  Country: US (occurrence: US)
  Receive Date: 20150722
  Receipt Date: 20151030
  Transmission Date: 20160304
  Serious: Yes (Hospitalization)
  Sender: FDA-Public Use
  Company Number: US-JNJFOC-20150710311

PATIENT
  Age: 68 Year
  Sex: Female
  Weight: 60.33 kg

DRUGS (2)
  1. XARELTO [Suspect]
     Active Substance: RIVAROXABAN
     Indication: CEREBROVASCULAR ACCIDENT PROPHYLAXIS
     Dosage: EVENING
     Route: 048
     Dates: start: 20121024, end: 20150528
  2. XARELTO [Suspect]
     Active Substance: RIVAROXABAN
     Indication: ATRIAL FIBRILLATION
     Dosage: EVENING
     Route: 048
     Dates: start: 20121024, end: 20150528

REACTIONS (2)
  - Cerebral haemorrhage [Recovering/Resolving]
  - Physiotherapy [Unknown]

NARRATIVE: CASE EVENT DATE: 20150527
